FAERS Safety Report 19815931 (Version 2)
Quarter: 2021Q3

REPORT INFORMATION
  Report Type: Report from Study
  Country: CA (occurrence: CA)
  Receive Date: 20210910
  Receipt Date: 20210929
  Transmission Date: 20211014
  Serious: Yes (Other)
  Sender: FDA-Public Use
  Company Number: CA-AMGEN-CANSL2021105904

PATIENT
  Age: 67 Year
  Sex: Male
  Weight: 84.5 kg

DRUGS (7)
  1. MVASI [Suspect]
     Active Substance: BEVACIZUMAB-AWWB
     Dosage: 800 MILLIGRAM, Q2WK
     Route: 042
     Dates: start: 20210721
  2. MVASI [Suspect]
     Active Substance: BEVACIZUMAB-AWWB
     Indication: GLIOBLASTOMA
     Dosage: 800 MILLIGRAM, Q2WK
     Route: 042
  3. MVASI [Suspect]
     Active Substance: BEVACIZUMAB-AWWB
     Dosage: 800 MILLIGRAM, Q2WK
     Route: 042
     Dates: start: 20210708
  4. MVASI [Suspect]
     Active Substance: BEVACIZUMAB-AWWB
     Dosage: 800 MILLIGRAM, Q2WK
     Route: 042
     Dates: start: 20210818
  5. MVASI [Suspect]
     Active Substance: BEVACIZUMAB-AWWB
     Dosage: 800 MILLIGRAM, Q2WK
     Route: 042
     Dates: start: 20210921
  6. MVASI [Suspect]
     Active Substance: BEVACIZUMAB-AWWB
     Dosage: 800 MILLIGRAM, Q2WK
     Route: 042
     Dates: start: 20210804
  7. MVASI [Suspect]
     Active Substance: BEVACIZUMAB-AWWB
     Dosage: 800 MILLIGRAM, Q2WK
     Route: 042
     Dates: start: 20210901

REACTIONS (14)
  - Somnolence [Recovered/Resolved]
  - Aphasia [Unknown]
  - Sleep disorder [Recovered/Resolved]
  - Dysphagia [Unknown]
  - Oesophagitis [Unknown]
  - Dyspnoea [Not Recovered/Not Resolved]
  - Depression [Recovered/Resolved]
  - Fatigue [Recovering/Resolving]
  - Malaise [Recovering/Resolving]
  - Decreased appetite [Not Recovered/Not Resolved]
  - Immunodeficiency [Unknown]
  - Dry mouth [Unknown]
  - Nausea [Recovered/Resolved]
  - Pain [Not Recovered/Not Resolved]
